FAERS Safety Report 8073000-0 (Version None)
Quarter: 2012Q1

REPORT INFORMATION
  Report Type: 
  Country: None (occurrence: None)
  Receive Date: 20120126
  Receipt Date: 20120123
  Transmission Date: 20120608
  Serious: Yes (Death)
  Sender: FDA-Public Use
  Company Number: US-ASTRAZENECA-2011SE74623

PATIENT
  Age: 85 Year

DRUGS (12)
  1. NEXIUM [Concomitant]
  2. POTASSIUM CHLORIDE [Concomitant]
  3. SEROQUEL [Suspect]
     Route: 048
  4. NITROSTAT [Concomitant]
  5. TOPROL-XL [Concomitant]
  6. NITROGLYCERIN [Concomitant]
  7. FUROSEMIDE [Concomitant]
  8. LEVOTHYROXINE SODIUM [Concomitant]
  9. ASPIRIN [Concomitant]
  10. LORAZEPAM [Concomitant]
  11. MORPHINE [Concomitant]
  12. AMBIEN [Concomitant]

REACTIONS (3)
  - CORONARY ARTERY DISEASE [None]
  - HYPERTENSION [None]
  - HYPERLIPIDAEMIA [None]
